FAERS Safety Report 9416267 (Version 1)
Quarter: 2013Q3

REPORT INFORMATION
  Report Type: Spontaneous
  Country: IE (occurrence: None)
  Receive Date: 20130719
  Receipt Date: 20130719
  Transmission Date: 20140515
  Serious: Yes (Life-Threatening)
  Sender: FDA-Public Use
  Company Number: 1796622

PATIENT
  Age: 54 Year
  Sex: Male

DRUGS (9)
  1. DEXMEDETOMIDINE HYDROCHLORIDE [Suspect]
     Indication: SEDATION
     Dosage: (NOT OTHERWISE SPECIFIED)
     Route: 042
     Dates: start: 20130619, end: 20130619
  2. PANTOPRAZOLE [Concomitant]
  3. AMOXICILLAN [Concomitant]
  4. LORAZEPAM [Concomitant]
  5. TERILPRESSIN [Concomitant]
  6. FENTANYL [Concomitant]
  7. ACYTLCYSTENE [Concomitant]
  8. CHLORHEXIDINE GLUCONATE [Concomitant]
  9. MYCOSTATIN [Concomitant]

REACTIONS (3)
  - Bradycardia [None]
  - Sinus arrest [None]
  - Electrocardiogram QT prolonged [None]
